FAERS Safety Report 9969664 (Version 2)
Quarter: 2014Q1

REPORT INFORMATION
  Report Type: Spontaneous
  Country: US (occurrence: None)
  Receive Date: 20140304
  Receipt Date: 20140325
  Transmission Date: 20141002
  Serious: Yes (Other)
  Sender: FDA-Public Use
  Company Number: 2014-00037

PATIENT
  Age: 37 Year
  Sex: Male
  Weight: 86.18 kg

DRUGS (1)
  1. ZICAM EXTREME CONGESTION RELIEF [Suspect]
     Indication: NASOPHARYNGITIS
     Dosage: 1 SPRAY EACH NOSTRIL ONCE
     Dates: start: 20140221, end: 20140221

REACTIONS (2)
  - Nasal congestion [None]
  - Anosmia [None]
